FAERS Safety Report 15549466 (Version 1)
Quarter: 2018Q4

REPORT INFORMATION
  Report Type: Spontaneous
  Country: US (occurrence: US)
  Receive Date: 20181025
  Receipt Date: 20181025
  Transmission Date: 20190205
  Serious: No
  Sender: FDA-Public Use
  Company Number: US-PFIZER INC-2018428488

PATIENT
  Sex: Male

DRUGS (1)
  1. NEURONTIN [Suspect]
     Active Substance: GABAPENTIN
     Dosage: 800 MG, 2X/DAY

REACTIONS (4)
  - Intentional product misuse [Unknown]
  - Vision blurred [Unknown]
  - Memory impairment [Unknown]
  - Feeling abnormal [Unknown]
